FAERS Safety Report 22816018 (Version 3)
Quarter: 2023Q4

REPORT INFORMATION
  Report Type: Other
  Country: CA (occurrence: None)
  Receive Date: 20230811
  Receipt Date: 20231116
  Transmission Date: 20240110
  Serious: Yes (Hospitalization, Other)
  Sender: FDA-Public Use
  Company Number: CA-ROCHE-3399715

PATIENT
  Age: 73 Year
  Sex: Female

DRUGS (2)
  1. ACTEMRA [Suspect]
     Active Substance: TOCILIZUMAB
     Indication: Rheumatoid arthritis
     Route: 042
     Dates: start: 20170220
  2. SYNTHROID [Concomitant]
     Active Substance: LEVOTHYROXINE SODIUM
     Indication: Product used for unknown indication

REACTIONS (7)
  - Myocardial infarction [Unknown]
  - Coronary arterial stent insertion [Unknown]
  - Anaemia [Unknown]
  - Gastrointestinal disorder [Unknown]
  - Hyperaesthesia teeth [Unknown]
  - Dyspnoea [Unknown]
  - Neuralgia [Unknown]

NARRATIVE: CASE EVENT DATE: 20230701
